FAERS Safety Report 12001207 (Version 1)
Quarter: 2016Q1

REPORT INFORMATION
  Report Type: Spontaneous
  Country: US (occurrence: US)
  Receive Date: 20160204
  Receipt Date: 20160204
  Transmission Date: 20160526
  Serious: Yes (Other)
  Sender: FDA-Public Use
  Company Number: US-ABBVIE-16P-163-1553664-00

PATIENT
  Age: 14 Year
  Sex: Male

DRUGS (3)
  1. DEPAKOTE [Suspect]
     Active Substance: DIVALPROEX SODIUM
     Indication: ATTENTION DEFICIT/HYPERACTIVITY DISORDER
  2. DEPAKOTE [Suspect]
     Active Substance: DIVALPROEX SODIUM
     Indication: BIPOLAR DISORDER
  3. DEPAKOTE [Suspect]
     Active Substance: DIVALPROEX SODIUM
     Indication: AUTISM
     Route: 065

REACTIONS (6)
  - Pallor [Recovering/Resolving]
  - Fatigue [Recovering/Resolving]
  - Contusion [Recovering/Resolving]
  - Refractory anaemia with an excess of blasts [Recovering/Resolving]
  - Pancytopenia [Recovering/Resolving]
  - Weight decreased [Recovering/Resolving]
